FAERS Safety Report 8397070 (Version 3)
Quarter: 2013Q4

REPORT INFORMATION
  Report Type: Report from Study
  Country: IT (occurrence: IT)
  Receive Date: 20120209
  Receipt Date: 20131206
  Transmission Date: 20140711
  Serious: Yes (Life-Threatening, Hospitalization, Other)
  Sender: FDA-Public Use
  Company Number: IT-CELGENEUS-083-21880-12012950

PATIENT
  Age: 78 Year
  Sex: Male
  Weight: 75 kg

DRUGS (3)
  1. REVLIMID [Suspect]
     Indication: PLASMA CELL MYELOMA
     Dosage: 25 MILLIGRAM
     Route: 048
     Dates: start: 20071019
  2. REVLIMID [Suspect]
     Dosage: 10 MILLIGRAM
     Route: 048
     Dates: start: 20080324, end: 20100224
  3. PREDNISONE [Concomitant]
     Indication: PLASMA CELL MYELOMA
     Route: 065
     Dates: end: 20100224

REACTIONS (1)
  - Nasal cavity cancer [Recovered/Resolved]
